FAERS Safety Report 11545401 (Version 1)
Quarter: 2015Q3

REPORT INFORMATION
  Report Type: Spontaneous
  Country: JP (occurrence: JP)
  Receive Date: 20150924
  Receipt Date: 20150924
  Transmission Date: 20151125
  Serious: Yes (Hospitalization)
  Sender: FDA-Public Use
  Company Number: JP-WARNER CHILCOTT, LLC-1042252

PATIENT
  Age: 86 Year
  Sex: Female

DRUGS (7)
  1. JUVELA N [Concomitant]
     Active Substance: TOCOPHERYL NICOTINATE, D-.ALPHA.
  2. CINAL [Concomitant]
     Active Substance: ASCORBIC ACID\CALCIUM PANTOTHENATE
  3. BENET [Suspect]
     Active Substance: RISEDRONATE SODIUM
     Indication: OSTEOPOROSIS
     Route: 048
     Dates: start: 20070521, end: 20150410
  4. MAGMITT [Concomitant]
     Active Substance: MAGNESIUM OXIDE
  5. PLAVIX [Concomitant]
     Active Substance: CLOPIDOGREL BISULFATE
  6. VITAMINS NOS [Concomitant]
     Active Substance: VITAMINS
  7. ONEALFA [Concomitant]
     Active Substance: ALFACALCIDOL

REACTIONS (2)
  - Osteomyelitis [Unknown]
  - Periodontitis [Unknown]
